FAERS Safety Report 18023865 (Version 1)
Quarter: 2020Q3

REPORT INFORMATION
  Report Type: Spontaneous
  Country: DE (occurrence: DE)
  Receive Date: 20200715
  Receipt Date: 20200715
  Transmission Date: 20201103
  Serious: Yes (Hospitalization, Disabling, Other)
  Sender: FDA-Public Use
  Company Number: DE-SA-2020SA178629

PATIENT

DRUGS (3)
  1. IMIGLUCERASE [Suspect]
     Active Substance: IMIGLUCERASE
     Indication: GAUCHER^S DISEASE
     Dosage: 45 IU/KG, QOW
     Route: 042
     Dates: start: 19990101, end: 20200707
  2. PAMIDRONATE [Concomitant]
     Active Substance: PAMIDRONATE DISODIUM
     Dosage: 90 MG, Q3M
  3. LENALIDOMIDE [Concomitant]
     Active Substance: LENALIDOMIDE

REACTIONS (7)
  - Monoclonal immunoglobulin present [Recovering/Resolving]
  - Bone marrow infiltration [Recovering/Resolving]
  - Osteolysis [Recovering/Resolving]
  - Quality of life decreased [Recovering/Resolving]
  - Plasma cell myeloma [Recovering/Resolving]
  - Pathological fracture [Unknown]
  - Immunoglobulins increased [Recovering/Resolving]

NARRATIVE: CASE EVENT DATE: 2009
